FAERS Safety Report 19666954 (Version 1)
Quarter: 2021Q3

REPORT INFORMATION
  Report Type: Spontaneous
  Country: GB (occurrence: GB)
  Receive Date: 20210806
  Receipt Date: 20210806
  Transmission Date: 20211014
  Serious: Yes (Disabling, Other)
  Sender: FDA-Public Use
  Company Number: GB-AUROBINDO-AUR-APL-2013-00807

PATIENT
  Age: 49 Year
  Sex: Male
  Weight: 96 kg

DRUGS (3)
  1. TAMFREX XL 400 MICROGRAM CAPSULES [Suspect]
     Active Substance: TAMSULOSIN HYDROCHLORIDE
     Indication: URINARY HESITATION
  2. FINASTERIDE 5 MG FILM COATED TABLETS [Suspect]
     Active Substance: FINASTERIDE
     Indication: NOCTURIA
     Dosage: 5 MG,ONCE A DAY,
     Route: 048
     Dates: start: 20041201, end: 20080616
  3. TAMFREX XL 400 MICROGRAM CAPSULES [Suspect]
     Active Substance: TAMSULOSIN HYDROCHLORIDE
     Indication: NOCTURIA
     Dosage: 400 UG,ONCE A DAY,
     Route: 048
     Dates: start: 20041201, end: 20080616

REACTIONS (6)
  - Sexual dysfunction [Not Recovered/Not Resolved]
  - Erectile dysfunction [Not Recovered/Not Resolved]
  - Procedural complication [Unknown]
  - Prostate cancer [Recovered/Resolved with Sequelae]
  - Haematospermia [Recovered/Resolved]
  - Penile curvature [Not Recovered/Not Resolved]

NARRATIVE: CASE EVENT DATE: 20050401
